FAERS Safety Report 9722069 (Version 2)
Quarter: 2014Q1

REPORT INFORMATION
  Report Type: Spontaneous
  Country: US (occurrence: US)
  Receive Date: 20131202
  Receipt Date: 20140130
  Transmission Date: 20141002
  Serious: No
  Sender: FDA-Public Use
  Company Number: US-BIOGENIDEC-2013BI095007

PATIENT
  Age: 63 Year
  Sex: Female

DRUGS (14)
  1. TECFIDERA [Suspect]
     Indication: MULTIPLE SCLEROSIS
     Dates: start: 20130904, end: 20131003
  2. TECFIDERA [Suspect]
     Indication: MULTIPLE SCLEROSIS
     Route: 048
     Dates: start: 20130906, end: 20130912
  3. TECFIDERA [Suspect]
     Indication: MULTIPLE SCLEROSIS
     Route: 048
     Dates: start: 20130913
  4. TECFIDERA [Suspect]
     Indication: MULTIPLE SCLEROSIS
  5. LISINOPRIL [Concomitant]
  6. PRAVACHOL [Concomitant]
  7. KLONOPIN [Concomitant]
  8. MIRAPEX [Concomitant]
  9. BABY ASPIRIN [Concomitant]
  10. FISH OIL [Concomitant]
  11. COMBIGAN [Concomitant]
  12. VOLTAREN [Concomitant]
  13. AVONEX [Concomitant]
     Route: 030
  14. AVONEX [Concomitant]
     Route: 030
     Dates: start: 20131101

REACTIONS (6)
  - Hyperhidrosis [Not Recovered/Not Resolved]
  - Chills [Not Recovered/Not Resolved]
  - Fatigue [Not Recovered/Not Resolved]
  - Lethargy [Recovered/Resolved]
  - Diarrhoea [Recovered/Resolved]
  - Nausea [Recovered/Resolved]
